FAERS Safety Report 17739401 (Version 1)
Quarter: 2020Q2

REPORT INFORMATION
  Report Type: Spontaneous
  Country: DE (occurrence: DE)
  Receive Date: 20200504
  Receipt Date: 20200504
  Transmission Date: 20200714
  Serious: Yes (Disabling, Other)
  Sender: FDA-Public Use
  Company Number: DE-DRREDDYS-GER/GER/20/0122477

PATIENT
  Age: 27 Year
  Sex: Female
  Weight: 55 kg

DRUGS (1)
  1. CIPROBETA 250 MG FILMTABLETTEN [Suspect]
     Active Substance: CIPROFLOXACIN
     Indication: PRODUCT USED FOR UNKNOWN INDICATION

REACTIONS (29)
  - Deafness [Not Recovered/Not Resolved]
  - Balance disorder [Unknown]
  - Paraesthesia [Unknown]
  - Nausea [Unknown]
  - Memory impairment [Unknown]
  - Apathy [Unknown]
  - Disturbance in attention [Unknown]
  - Hypoaesthesia [Unknown]
  - Tinnitus [Unknown]
  - Gait disturbance [Unknown]
  - Sensory disturbance [Unknown]
  - Feeling drunk [Unknown]
  - Visual impairment [Unknown]
  - Asthenia [Unknown]
  - Tinnitus [Unknown]
  - Somnolence [Unknown]
  - Illusion [Unknown]
  - Poor quality sleep [Unknown]
  - Exercise tolerance decreased [Unknown]
  - Balance disorder [Unknown]
  - Fatigue [Unknown]
  - Dizziness [Unknown]
  - Musculoskeletal pain [Unknown]
  - Impaired work ability [Unknown]
  - Myalgia [Unknown]
  - Depression [Unknown]
  - Muscular weakness [Unknown]
  - Mental impairment [Unknown]
  - Arthralgia [Unknown]

NARRATIVE: CASE EVENT DATE: 2014
